FAERS Safety Report 4315868-7 (Version None)
Quarter: 2004Q1

REPORT INFORMATION
  Report Type: 
  Country: None (occurrence: None)
  Receive Date: 20040311
  Receipt Date: 20040301
  Transmission Date: 20041129
  Serious: Yes (Other)
  Sender: FDA-Public Use
  Company Number: JP-BRISTOL-MYERS SQUIBB COMPANY-12520300

PATIENT
  Age: 60 Year
  Sex: Female

DRUGS (1)
  1. CISPLATIN [Suspect]
     Indication: UTERINE CANCER
     Route: 013
     Dates: start: 19990702, end: 19990702

REACTIONS (3)
  - LESION OF SCIATIC NERVE [None]
  - LUMBAR RADICULOPATHY [None]
  - PALLANAESTHESIA [None]
